FAERS Safety Report 23924614 (Version 1)
Quarter: 2024Q2

REPORT INFORMATION
  Report Type: Spontaneous
  Country: CZ (occurrence: CZ)
  Receive Date: 20240531
  Receipt Date: 20240531
  Transmission Date: 20240715
  Serious: Yes (Hospitalization, Other)
  Sender: FDA-Public Use
  Company Number: CZ-AMGEN-CZESP2024101990

PATIENT
  Age: 42 Year
  Sex: Male

DRUGS (20)
  1. NPLATE [Suspect]
     Active Substance: ROMIPLOSTIM
     Indication: Product used for unknown indication
     Dosage: UNK (1X 250MCG - 2X 250MCG)
     Route: 065
  2. TELMISARTAN [Concomitant]
     Active Substance: TELMISARTAN
     Indication: Hypertension
     Dosage: UNK (80 0.5-0-0)
  3. PREDNISONE [Concomitant]
     Active Substance: PREDNISONE
     Dosage: UNK (40 MG) (RESPONSE 26-163-107)
  4. PREDNISONE [Concomitant]
     Active Substance: PREDNISONE
     Dosage: UNK (143-24(PREDNISONE 5))
  5. RILZABRUTINIB [Concomitant]
     Active Substance: RILZABRUTINIB
     Dosage: UNK UNK, BID (400MG 1 -0- 1)
  6. MYCOPHENOLATE MOFETIL [Concomitant]
     Active Substance: MYCOPHENOLATE MOFETIL
  7. Immunoglobulin [Concomitant]
     Route: 042
  8. TACROLIMUS [Concomitant]
     Active Substance: TACROLIMUS
     Dosage: UNK UNK, BID (5 MG 1 -0- 1)
  9. CYCLOPHOSPHAMIDE [Concomitant]
     Active Substance: CYCLOPHOSPHAMIDE
  10. VINCRISTINE [Concomitant]
     Active Substance: VINCRISTINE
  11. MEDROL [Concomitant]
     Active Substance: METHYLPREDNISOLONE
     Dosage: UNK (48 MG)
  12. VITAMIN C [Concomitant]
     Active Substance: ASCORBIC ACID
  13. VITAMIN D [Concomitant]
     Active Substance: VITAMIN D NOS
  14. VELCADE [Concomitant]
     Active Substance: BORTEZOMIB
  15. ALEMTUZUMAB [Concomitant]
     Active Substance: ALEMTUZUMAB
     Dosage: UNK
     Dates: start: 202208
  16. ETOPOSIDE [Concomitant]
     Active Substance: ETOPOSIDE
  17. TAMIFLU [Concomitant]
     Active Substance: OSELTAMIVIR PHOSPHATE
  18. FOSTAMATINIB DISODIUM [Concomitant]
     Active Substance: FOSTAMATINIB DISODIUM
  19. RAPAMUNE [Concomitant]
     Active Substance: SIROLIMUS
  20. ATORVASTATIN CALCIUM [Concomitant]
     Active Substance: ATORVASTATIN CALCIUM

REACTIONS (7)
  - Incisional hernia [Unknown]
  - Ependymoma [Unknown]
  - Schwannoma [Unknown]
  - Drug ineffective [Unknown]
  - Fatigue [Unknown]
  - Back pain [Unknown]
  - Radiculopathy [Unknown]

NARRATIVE: CASE EVENT DATE: 20210301
